FAERS Safety Report 6273375-9 (Version None)
Quarter: 2009Q3

REPORT INFORMATION
  Report Type: 
  Country: None (occurrence: None)
  Receive Date: 20090715
  Receipt Date: 20090701
  Transmission Date: 20100115
  Serious: Yes (Other)
  Sender: FDA-Public Use
  Company Number: 1000007295

PATIENT
  Sex: Female

DRUGS (7)
  1. MEMANTINE HCL [Suspect]
     Indication: BEHAVIOURAL AND PSYCHIATRIC SYMPTOMS OF DEMENTIA
     Dosage: ORAL
     Route: 048
     Dates: end: 20090629
  2. EQUANIL [Concomitant]
  3. POLYETHYLENE GLYCOL [Concomitant]
  4. MIRTAZAPINE [Concomitant]
  5. NEXIUM [Concomitant]
  6. LASIX [Concomitant]
  7. DOLIPRANE [Concomitant]

REACTIONS (1)
  - BRAIN NATRIURETIC PEPTIDE INCREASED [None]
